FAERS Safety Report 21763576 (Version 2)
Quarter: 2022Q4

REPORT INFORMATION
  Report Type: Report from Study
  Country: KR (occurrence: KR)
  Receive Date: 20221222
  Receipt Date: 20221229
  Transmission Date: 20230113
  Serious: Yes (Death, Hospitalization, Other)
  Sender: FDA-Public Use
  Company Number: KR-CELLTRION INC.-2022KR021234

PATIENT

DRUGS (8)
  1. INFLIXIMAB [Suspect]
     Active Substance: INFLIXIMAB
     Indication: Rheumatoid arthritis
     Dosage: 120 MILLIGRAM
     Route: 058
     Dates: start: 20221013, end: 2022
  2. INFLIXIMAB [Suspect]
     Active Substance: INFLIXIMAB
     Indication: Product used for unknown indication
     Dosage: 300 MILLIGRAM
     Route: 042
     Dates: start: 20220901, end: 20220915
  3. METHOTREXATE [Concomitant]
     Active Substance: METHOTREXATE
     Indication: Rheumatoid arthritis
     Dosage: METHOTREXATE 10MG QW
     Route: 048
     Dates: start: 20060804
  4. FOLIC ACID [Concomitant]
     Active Substance: FOLIC ACID
     Indication: Prophylaxis
     Dosage: 1 MILLIGRAM, QD
     Route: 048
     Dates: start: 20060804
  5. RABEPRAZOLE SODIUM [Concomitant]
     Active Substance: RABEPRAZOLE SODIUM
     Indication: Prophylaxis
     Dosage: 10 MILLIGRAM, QD
     Route: 048
     Dates: start: 20150713
  6. FERROUS SULFATE [Concomitant]
     Active Substance: FERROUS SULFATE
     Indication: Anaemia
     Dosage: 1 DOSAGE FORM, QD
     Route: 048
     Dates: start: 20190916
  7. DICAMAX [Concomitant]
     Indication: Osteoporosis
     Dosage: 1 DOSAGE FORM, QD
     Route: 048
     Dates: start: 20171019
  8. METHYLPREDNISOLONE [Concomitant]
     Active Substance: METHYLPREDNISOLONE
     Indication: Rheumatoid arthritis
     Dosage: 4 MILLIGRAM, QD
     Route: 048
     Dates: start: 20081018

REACTIONS (1)
  - Disseminated tuberculosis [Fatal]

NARRATIVE: CASE EVENT DATE: 20221128
